FAERS Safety Report 8658071 (Version 3)
Quarter: 2012Q4

REPORT INFORMATION
  Report Type: 
  Country: CO (occurrence: CO)
  Receive Date: 20120710
  Receipt Date: 20120917
  Transmission Date: 20130627
  Serious: Yes (Other)
  Sender: FDA-Public Use
  Company Number: CO-PFIZER INC-2012161247

PATIENT
  Age: 6 Year
  Sex: Male

DRUGS (2)
  1. GENOTROPIN [Suspect]
     Indication: BODY HEIGHT BELOW NORMAL
     Dosage: one dose per day
     Route: 058
     Dates: start: 20120615, end: 20120620
  2. SALBUTAMOL [Concomitant]
     Indication: ASTHMA
     Dosage: 4 puff every hour
     Route: 055
     Dates: start: 20120703

REACTIONS (4)
  - Asthmatic crisis [Unknown]
  - Cough [Unknown]
  - Vomiting [Unknown]
  - Drug administration error [Unknown]
